FAERS Safety Report 10528579 (Version 7)
Quarter: 2015Q3

REPORT INFORMATION
  Report Type: Report from Study
  Country: US (occurrence: US)
  Receive Date: 20141020
  Receipt Date: 20150803
  Transmission Date: 20151125
  Serious: Yes (Other)
  Sender: FDA-Public Use
  Company Number: US-SA-2014SA134839

PATIENT
  Age: 40 Year
  Sex: Female

DRUGS (1)
  1. AUBAGIO [Suspect]
     Active Substance: TERIFLUNOMIDE
     Indication: MULTIPLE SCLEROSIS
     Route: 048
     Dates: start: 20140909

REACTIONS (16)
  - Dyspnoea [Unknown]
  - Sinusitis [Unknown]
  - Alopecia [Recovering/Resolving]
  - Hypersomnia [Unknown]
  - Central nervous system lesion [Unknown]
  - Lymphadenopathy [Unknown]
  - Headache [Unknown]
  - Malaise [Recovering/Resolving]
  - Feeling abnormal [Recovering/Resolving]
  - Asthenia [Unknown]
  - Swelling face [Unknown]
  - Malaise [Unknown]
  - Alopecia [Not Recovered/Not Resolved]
  - Pain [Unknown]
  - Decreased appetite [Unknown]
  - Hunger [Recovered/Resolved]
